FAERS Safety Report 5563298-2 (Version None)
Quarter: 2007Q4

REPORT INFORMATION
  Report Type: 
  Country: None (occurrence: None)
  Receive Date: 20071217
  Receipt Date: 20071214
  Transmission Date: 20080405
  Serious: Yes (Hospitalization)
  Sender: FDA-Public Use
  Company Number: DE-BRISTOL-MYERS SQUIBB COMPANY-14015499

PATIENT
  Age: 54 Year
  Sex: Female

DRUGS (4)
  1. CYCLOPHOSPHAMIDE [Suspect]
     Indication: BREAST CANCER
     Dosage: ALSO ADMINSTERED ON - 06-SEP-2007
     Dates: start: 20070920, end: 20070920
  2. TAXOL [Suspect]
     Indication: BREAST CANCER
     Dates: start: 20070726, end: 20070823
  3. EPIRUBICIN [Suspect]
     Indication: BREAST CANCER
     Dates: start: 20070614, end: 20070712
  4. NEORECORMON [Concomitant]
     Dosage: 1 DOSAGEFORM = 30000 IE
     Dates: start: 20070614, end: 20071022

REACTIONS (2)
  - FEBRILE NEUTROPENIA [None]
  - SYNCOPE [None]
